FAERS Safety Report 11680963 (Version 2)
Quarter: 2015Q4

REPORT INFORMATION
  Report Type: Spontaneous
  Country: US (occurrence: US)
  Receive Date: 20151027
  Receipt Date: 20151110
  Transmission Date: 20160304
  Serious: No
  Sender: FDA-Public Use
  Company Number: US-ELI_LILLY_AND_COMPANY-US201011004499

PATIENT
  Sex: Male

DRUGS (2)
  1. FORTEO [Suspect]
     Active Substance: TERIPARATIDE
     Indication: OSTEOPOROSIS
     Dosage: 20 UG, QD
     Dates: start: 201010
  2. FORTEO [Suspect]
     Active Substance: TERIPARATIDE
     Dosage: 20 UG, QD

REACTIONS (14)
  - Injection site reaction [Unknown]
  - Injection site erythema [Unknown]
  - Arthralgia [Unknown]
  - Visual impairment [Unknown]
  - Muscle spasms [Unknown]
  - Limb discomfort [Not Recovered/Not Resolved]
  - Drug ineffective [Unknown]
  - General physical health deterioration [Unknown]
  - Anxiety [Unknown]
  - Musculoskeletal discomfort [Not Recovered/Not Resolved]
  - Pelvic discomfort [Unknown]
  - Contusion [Unknown]
  - Decreased activity [Not Recovered/Not Resolved]
  - Musculoskeletal discomfort [Unknown]
